FAERS Safety Report 11221684 (Version 6)
Quarter: 2015Q2

REPORT INFORMATION
  Report Type: Spontaneous
  Country: US (occurrence: US)
  Receive Date: 20150626
  Receipt Date: 20150629
  Transmission Date: 20150821
  Serious: Yes (Death, Life-Threatening)
  Sender: FDA-Public Use
  Company Number: US-IKARIA-201506000215

PATIENT
  Sex: Female

DRUGS (15)
  1. INOMAX [Suspect]
     Active Substance: NITRIC OXIDE
     Dosage: 3 PPM, CONTINUOUS
     Dates: start: 201505, end: 201505
  2. INOMAX [Suspect]
     Active Substance: NITRIC OXIDE
     Dosage: 40 PPM, CONTINUOUS
     Dates: start: 201505, end: 201505
  3. INOMAX [Suspect]
     Active Substance: NITRIC OXIDE
     Dosage: 20 PPM, CONTINUOUS
     Dates: start: 201505, end: 201505
  4. INOMAX [Suspect]
     Active Substance: NITRIC OXIDE
     Dosage: 35 PPM, CONTINUOUS
     Dates: start: 201505, end: 201505
  5. INOMAX [Suspect]
     Active Substance: NITRIC OXIDE
     Dosage: 25 PPM, CONTINUOUS
     Dates: start: 201505, end: 201505
  6. INOMAX [Suspect]
     Active Substance: NITRIC OXIDE
     Dosage: 2 PPM, CONTINUOUS
     Dates: start: 201505, end: 201505
  7. INOMAX [Suspect]
     Active Substance: NITRIC OXIDE
     Dosage: 10 PPM, CONTINUOUS
     Dates: start: 201505, end: 201505
  8. INOMAX [Suspect]
     Active Substance: NITRIC OXIDE
     Dosage: 5 PPM, CONTINUOUS
     Dates: start: 201505, end: 201505
  9. INOMAX [Suspect]
     Active Substance: NITRIC OXIDE
     Dosage: 30 PPM, CONTINUOUS
     Dates: start: 201505, end: 201505
  10. INOMAX [Suspect]
     Active Substance: NITRIC OXIDE
     Dosage: 15 PPM, CONTINUOUS
     Dates: start: 201505, end: 201505
  11. INOMAX [Suspect]
     Active Substance: NITRIC OXIDE
     Dosage: 1 PPM, CONTINUOUS
     Dates: start: 201505, end: 20150522
  12. INOMAX [Suspect]
     Active Substance: NITRIC OXIDE
     Dosage: 30 PPM, CONTINUOUS
     Dates: start: 20150523, end: 201505
  13. INOMAX [Suspect]
     Active Substance: NITRIC OXIDE
     Dosage: 20 PPM, CONTINUOUS
     Dates: start: 201505, end: 20150601
  14. INOMAX [Suspect]
     Active Substance: NITRIC OXIDE
     Indication: PULMONARY HYPERTENSION
     Dosage: 40 PPM, CONTINUOUS
     Dates: start: 20150521, end: 201505
  15. INOMAX [Suspect]
     Active Substance: NITRIC OXIDE
     Dosage: 4 PPM, CONTINUOUS
     Dates: start: 201505, end: 201505

REACTIONS (5)
  - General physical health deterioration [Not Recovered/Not Resolved]
  - Renal failure [Not Recovered/Not Resolved]
  - Multi-organ failure [Fatal]
  - Off label use [Unknown]
  - Dialysis [None]

NARRATIVE: CASE EVENT DATE: 20150521
